FAERS Safety Report 14338726 (Version 1)
Quarter: 2017Q4

REPORT INFORMATION
  Report Type: Spontaneous
  Country: CN (occurrence: CN)
  Receive Date: 20171229
  Receipt Date: 20171229
  Transmission Date: 20180321
  Serious: Yes (Other)
  Sender: FDA-Public Use
  Company Number: PHHY2017CN189596

PATIENT

DRUGS (9)
  1. ARA-C [Suspect]
     Active Substance: CYTARABINE
     Dosage: 50 MG, QW
     Route: 037
  2. RITUXIMAB. [Suspect]
     Active Substance: RITUXIMAB
     Dosage: 10 MG, QW
     Route: 037
  3. DEXAMETHASONE. [Suspect]
     Active Substance: DEXAMETHASONE
     Indication: CENTRAL NERVOUS SYSTEM LYMPHOMA
     Dosage: 100 MG/M2, UNK
     Route: 065
  4. ARA-C [Suspect]
     Active Substance: CYTARABINE
     Indication: CENTRAL NERVOUS SYSTEM LYMPHOMA
     Dosage: 1 G/M2, UNK
     Route: 065
  5. RITUXIMAB. [Suspect]
     Active Substance: RITUXIMAB
     Indication: CENTRAL NERVOUS SYSTEM LYMPHOMA
     Dosage: 375 MG/M2, UNK
     Route: 065
  6. METHOTREXATE. [Suspect]
     Active Substance: METHOTREXATE
     Dosage: 15 MG, QW
     Route: 037
  7. METHOTREXATE. [Suspect]
     Active Substance: METHOTREXATE
     Indication: CENTRAL NERVOUS SYSTEM LYMPHOMA
     Dosage: 2 G/M2, UNK
     Route: 065
  8. IDARUBICIN [Suspect]
     Active Substance: IDARUBICIN
     Indication: CENTRAL NERVOUS SYSTEM LYMPHOMA
     Dosage: 10 MG/M2, UNK
     Route: 065
  9. DEXAMETHASONE. [Suspect]
     Active Substance: DEXAMETHASONE
     Dosage: 5 MG, QW
     Route: 037

REACTIONS (2)
  - Therapeutic response decreased [Unknown]
  - Nephropathy toxic [Unknown]
